FAERS Safety Report 6029140-0 (Version None)
Quarter: 2009Q1

REPORT INFORMATION
  Report Type: 
  Country: None (occurrence: None)
  Receive Date: 20090102
  Receipt Date: 20081219
  Transmission Date: 20090719
  Serious: Yes (Death)
  Sender: FDA-Public Use
  Company Number: 2008S1022770

PATIENT
  Age: 79 Year
  Sex: Male

DRUGS (1)
  1. AMNESTEEM [Suspect]
     Indication: DERMATITIS
     Dosage: 40 MG; DAILY; ORAL
     Route: 048
     Dates: end: 20081201

REACTIONS (1)
  - CARDIAC DISORDER [None]
